FAERS Safety Report 9542600 (Version 1)
Quarter: 2013Q2

REPORT INFORMATION
  Report Type: Spontaneous
  Country: US (occurrence: None)
  Receive Date: 20130524
  Receipt Date: 20130524
  Transmission Date: 20140414
  Serious: No
  Sender: FDA-Public Use
  Company Number: PHEH2013US001391

PATIENT
  Age: 33 Year
  Sex: 0
  Weight: 94.3 kg

DRUGS (4)
  1. GILENYA (FINGOLIMOD) CAPSULE, 0.5MG [Suspect]
     Indication: MULTIPLE SCLEROSIS
     Route: 048
     Dates: start: 201209
  2. NEURONTIN (GABAPENTIN) [Concomitant]
  3. AMBIEN (ZOLPIDEM TARTRATE) [Concomitant]
  4. OXYBUTYNIN (OXYBUTYNIN) [Concomitant]

REACTIONS (5)
  - Influenza like illness [None]
  - Dyspnoea [None]
  - Malaise [None]
  - Pyrexia [None]
  - Pain [None]
